FAERS Safety Report 7035052-6 (Version None)
Quarter: 2010Q4

REPORT INFORMATION
  Report Type: 
  Country: None (occurrence: None)
  Receive Date: 20101008
  Receipt Date: 20101004
  Transmission Date: 20110411
  Serious: Yes (Other)
  Sender: FDA-Public Use
  Company Number: KW-ROCHE-730853

PATIENT

DRUGS (1)
  1. MYCOPHENOLATE MOFETIL [Suspect]
     Indication: LUPUS NEPHRITIS
     Route: 048

REACTIONS (11)
  - ANAEMIA [None]
  - BRONCHITIS [None]
  - CANDIDIASIS [None]
  - GASTROINTESTINAL DISORDER [None]
  - HERPES ZOSTER [None]
  - INFECTION [None]
  - LEUKOPENIA [None]
  - MENSTRUATION IRREGULAR [None]
  - PNEUMONIA [None]
  - RENAL FAILURE CHRONIC [None]
  - URINARY TRACT INFECTION [None]
